FAERS Safety Report 15419593 (Version 1)
Quarter: 2018Q3

REPORT INFORMATION
  Report Type: Report from Study
  Country: ES (occurrence: ES)
  Receive Date: 20180924
  Receipt Date: 20180924
  Transmission Date: 20181010
  Serious: Yes (Other)
  Sender: FDA-Public Use
  Company Number: ES-PFIZER INC-2018373799

PATIENT
  Age: 75 Year
  Sex: Male

DRUGS (2)
  1. LINEZOLID. [Suspect]
     Active Substance: LINEZOLID
     Indication: CENTRAL NERVOUS SYSTEM INFECTION
     Dosage: 600 MG, 2X/DAY
     Route: 048
  2. LINEZOLID. [Suspect]
     Active Substance: LINEZOLID
     Indication: NOCARDIOSIS

REACTIONS (3)
  - Asthenia [Unknown]
  - Lactic acidosis [Recovered/Resolved]
  - Anaemia [Unknown]
